FAERS Safety Report 10466751 (Version 4)
Quarter: 2014Q4

REPORT INFORMATION
  Report Type: Spontaneous
  Country: JP (occurrence: JP)
  Receive Date: 20140922
  Receipt Date: 20141110
  Transmission Date: 20150528
  Serious: No
  Sender: FDA-Public Use
  Company Number: JP-NOVOPROD-421633

PATIENT
  Age: 50 Year
  Sex: Female

DRUGS (8)
  1. TRESIBA CHU FLEXTOUCH [Concomitant]
     Active Substance: INSULIN DEGLUDEC
     Indication: DIABETES MELLITUS
     Dosage: 12 IU, QD (BEFORE BEDTIME)
     Route: 058
     Dates: start: 20140409
  2. NOVORAPID [Suspect]
     Active Substance: INSULIN ASPART
     Indication: DIABETES MELLITUS
     Dosage: 28 IU, QD (12 IU IN MORNING- 8 IU AT LUNCH AND 8 IU AT DINNER)
     Route: 058
     Dates: start: 20140409
  3. TRESIBA CHU FLEXTOUCH [Concomitant]
     Active Substance: INSULIN DEGLUDEC
     Dosage: 20 IU, QD
     Route: 058
  4. CRESTOR [Concomitant]
     Active Substance: ROSUVASTATIN CALCIUM
     Indication: LIPIDS ABNORMAL
     Dosage: 5 MG, QD
     Route: 048
     Dates: start: 20140501
  5. NOVORAPID [Suspect]
     Active Substance: INSULIN ASPART
     Dosage: 32 IU, QD (12-12-8)
     Route: 058
  6. NOVORAPID [Suspect]
     Active Substance: INSULIN ASPART
     Dosage: 8 IU, QD
     Route: 058
     Dates: start: 2014
  7. JUVELA                             /00110502/ [Concomitant]
     Dosage: 300 MG, TID
     Route: 048
     Dates: start: 20140507, end: 20140507
  8. NEXIUM [Concomitant]
     Active Substance: ESOMEPRAZOLE MAGNESIUM
     Indication: GASTROOESOPHAGEAL REFLUX DISEASE
     Dosage: UNK
     Route: 048
     Dates: start: 20140507, end: 20140507

REACTIONS (2)
  - Sensation of foreign body [Unknown]
  - Pain [Recovering/Resolving]

NARRATIVE: CASE EVENT DATE: 2014
